FAERS Safety Report 22174983 (Version 7)
Quarter: 2025Q3

REPORT INFORMATION
  Report Type: Report from Study
  Country: CO (occurrence: CO)
  Receive Date: 20230405
  Receipt Date: 20250826
  Transmission Date: 20251021
  Serious: Yes (Life-Threatening, Hospitalization, Other)
  Sender: NOVARTIS
  Company Number: CO-002147023-NVSC2023CO074749

PATIENT
  Age: 70 Year
  Sex: Female

DRUGS (4)
  1. TASIGNA [Suspect]
     Active Substance: NILOTINIB
     Indication: Chronic myeloid leukaemia
     Dosage: 800 MG, QD
     Route: 048
     Dates: start: 2011
  2. TASIGNA [Suspect]
     Active Substance: NILOTINIB
     Dosage: 400 MG, Q12H
     Route: 048
     Dates: end: 202305
  3. TASIGNA [Suspect]
     Active Substance: NILOTINIB
     Dosage: 200 MG, Q12H
     Route: 048
  4. TASIGNA [Suspect]
     Active Substance: NILOTINIB
     Dosage: 300 MG, Q12H
     Route: 065

REACTIONS (8)
  - Acute myocardial infarction [Unknown]
  - Haemoglobin abnormal [Unknown]
  - Angina unstable [Unknown]
  - Chronic myeloid leukaemia [Unknown]
  - Disease recurrence [Unknown]
  - Blood pressure decreased [Unknown]
  - Malaise [Unknown]
  - Inappropriate schedule of product administration [Unknown]

NARRATIVE: CASE EVENT DATE: 20230522
